FAERS Safety Report 5907385-5 (Version None)
Quarter: 2008Q4

REPORT INFORMATION
  Report Type: 
  Country: None (occurrence: None)
  Receive Date: 20081003
  Receipt Date: 20081001
  Transmission Date: 20090506
  Serious: Yes (Other)
  Sender: FDA-Public Use
  Company Number: US-ABBOTT-08P-163-0479296-00

PATIENT
  Age: 32 Year
  Sex: Female

DRUGS (2)
  1. KALETRA [Suspect]
     Indication: ANTIRETROVIRAL THERAPY
     Dosage: FOUR PILLS, DAILY
     Route: 048
  2. ABACAVIR SULFATE LAMIVUDINE AND ZIDOVUDINE [Suspect]
     Indication: ANTIRETROVIRAL THERAPY
     Route: 048

REACTIONS (1)
  - ABORTION SPONTANEOUS [None]
